FAERS Safety Report 6760294-4 (Version None)
Quarter: 2010Q2

REPORT INFORMATION
  Report Type: 
  Country: None (occurrence: None)
  Receive Date: 20100528
  Receipt Date: 20081124
  Transmission Date: 20101027
  Serious: No
  Sender: FDA-Public Use
  Company Number: 2008-00117

PATIENT
  Age: 62 Year
  Sex: Male
  Weight: 86.1834 kg

DRUGS (2)
  1. ZICAM COLD REMEDY GEL SWABS [Suspect]
     Dosage: TID X 3 DAYS
     Dates: start: 20081001
  2. ADVAIR DISKUS 100/50 [Concomitant]

REACTIONS (1)
  - ANOSMIA [None]
